FAERS Safety Report 20722893 (Version 1)
Quarter: 2022Q2

REPORT INFORMATION
  Report Type: Spontaneous
  Country: HU (occurrence: HU)
  Receive Date: 20220419
  Receipt Date: 20220419
  Transmission Date: 20220720
  Serious: Yes (Other)
  Sender: FDA-Public Use
  Company Number: HU-002147023-NVSC2022HU071662

PATIENT
  Age: 72 Year
  Sex: Female

DRUGS (4)
  1. TRAMADOL HYDROCHLORIDE [Suspect]
     Active Substance: TRAMADOL HYDROCHLORIDE
     Indication: Pain in extremity
     Dosage: UNK
     Route: 065
     Dates: start: 2021
  2. LETROZOLE [Suspect]
     Active Substance: LETROZOLE
     Indication: Breast neoplasm
     Dosage: UNK
     Route: 065
     Dates: start: 20211116
  3. IBANDRONIC ACID [Suspect]
     Active Substance: IBANDRONIC ACID
     Indication: Breast neoplasm
     Dosage: UNK
     Route: 065
     Dates: start: 20211116
  4. RIBOCICLIB [Suspect]
     Active Substance: RIBOCICLIB
     Indication: Breast neoplasm
     Dosage: 200 MILLIGRAM
     Route: 065
     Dates: start: 20211116

REACTIONS (8)
  - Bone lesion [Unknown]
  - Blood alkaline phosphatase increased [Recovered/Resolved]
  - Metastases to bone [Unknown]
  - Metastases to liver [Recovering/Resolving]
  - Carbohydrate antigen 15-3 increased [Unknown]
  - Invasive lobular breast carcinoma [Recovering/Resolving]
  - Spinal pain [Recovering/Resolving]
  - Metastases to lymph nodes [Unknown]

NARRATIVE: CASE EVENT DATE: 20210101
